FAERS Safety Report 9922131 (Version 1)
Quarter: 2014Q1

REPORT INFORMATION
  Report Type: Report from Study
  Country: BR (occurrence: BR)
  Receive Date: 20140225
  Receipt Date: 20140225
  Transmission Date: 20141002
  Serious: Yes (Other)
  Sender: FDA-Public Use
  Company Number: PHHY2014BR021812

PATIENT
  Sex: Female
  Weight: 72 kg

DRUGS (6)
  1. RASILEZ HCT [Suspect]
     Indication: HYPERTENSION
     Dosage: 1 DF (300 MG ALAS, 25MG HYDR), DAILY
     Route: 048
  2. DIOVAN [Suspect]
     Indication: HYPERTENSION
     Dosage: 1 DF, DAILY
     Route: 048
  3. JANUVIA [Concomitant]
     Indication: DIABETES MELLITUS
     Dosage: 100 MG, UNK
  4. GLIFAGE [Concomitant]
     Indication: DIABETES MELLITUS
     Dosage: 500 MG, UNK
  5. INSULIN [Concomitant]
     Indication: DIABETES MELLITUS
     Dosage: UNK UKN, UNK
  6. HUMALOG [Concomitant]
     Indication: DIABETES MELLITUS
     Dosage: UNK UKN, UNK

REACTIONS (2)
  - Gastrointestinal carcinoma [Unknown]
  - Blood pressure increased [Unknown]
